FAERS Safety Report 13542053 (Version 3)
Quarter: 2017Q2

REPORT INFORMATION
  Report Type: Report from Study
  Country: US (occurrence: US)
  Receive Date: 20170512
  Receipt Date: 20170620
  Transmission Date: 20170830
  Serious: Yes (Hospitalization)
  Sender: FDA-Public Use
  Company Number: US-ACTELION-A-US2017-153605

PATIENT
  Age: 50 Year
  Sex: Male
  Weight: 61.68 kg

DRUGS (1)
  1. VELETRI [Suspect]
     Active Substance: EPOPROSTENOL
     Indication: PULMONARY HYPERTENSION
     Dosage: 15 NG/KG, PER MIN
     Route: 042
     Dates: start: 20170320

REACTIONS (5)
  - Device leakage [Unknown]
  - Sepsis [Unknown]
  - Chest discomfort [Unknown]
  - Pulmonary endarterectomy [Unknown]
  - Chest pain [Unknown]

NARRATIVE: CASE EVENT DATE: 20170402
